FAERS Safety Report 13588954 (Version 9)
Quarter: 2018Q3

REPORT INFORMATION
  Report Type: Spontaneous
  Country: JP (occurrence: JP)
  Receive Date: 20170529
  Receipt Date: 20180730
  Transmission Date: 20181010
  Serious: Yes (Death, Hospitalization, Other)
  Sender: FDA-Public Use
  Company Number: JP-009507513-1705JPN001426J

PATIENT
  Age: 78 Year
  Sex: Male
  Weight: 54 kg

DRUGS (11)
  1. FEXOFENADINE HYDROCHLORIDE. [Concomitant]
     Active Substance: FEXOFENADINE HYDROCHLORIDE
     Indication: PROPHYLAXIS
     Dosage: 60 MG, BID
     Route: 048
     Dates: end: 20170528
  2. LECICARBON [Concomitant]
     Active Substance: SODIUM BICARBONATE\SODIUM PHOSPHATE, MONOBASIC
     Indication: PROPHYLAXIS
     Dosage: 1 DF, QD
     Route: 054
     Dates: start: 20170512, end: 20170512
  3. KEYTRUDA [Suspect]
     Active Substance: PEMBROLIZUMAB
     Indication: LUNG ADENOCARCINOMA
     Dosage: 200 MG, Q3W
     Route: 041
     Dates: start: 20170509, end: 20170509
  4. FAMOTIDINE. [Concomitant]
     Active Substance: FAMOTIDINE
     Indication: PROPHYLAXIS
     Dosage: 20 MG, QD
     Route: 048
  5. CANDESARTAN. [Concomitant]
     Active Substance: CANDESARTAN
     Dosage: 8 MG, QD
     Route: 048
     Dates: end: 20170621
  6. DENOTAS [Concomitant]
     Active Substance: CALCIUM CARBONATE\CHOLECALCIFEROL\MAGNESIUM CARBONATE
     Indication: LUNG ADENOCARCINOMA
     Dosage: 2 DF, QD
     Route: 048
     Dates: end: 20170529
  7. SENNA [Concomitant]
     Active Substance: SENNA LEAF\SENNOSIDES\SENNOSIDES A AND B
     Indication: PROPHYLAXIS
     Dosage: 80 MG, QD
     Route: 048
     Dates: start: 20170511, end: 20170513
  8. BAYASPIRIN [Concomitant]
     Active Substance: ASPIRIN
     Indication: PROPHYLAXIS
     Dosage: 100 MG, QD
     Route: 048
  9. MAGMITT [Concomitant]
     Active Substance: MAGNESIUM OXIDE
     Indication: PROPHYLAXIS
     Dosage: 250 MG, PRN
     Route: 048
  10. FEBURIC [Concomitant]
     Active Substance: FEBUXOSTAT
     Dosage: 10 MG, QD
     Route: 048
     Dates: end: 20170526
  11. RANMARK [Concomitant]
     Active Substance: DENOSUMAB
     Indication: LUNG ADENOCARCINOMA
     Dosage: 120 MG, EVERY 4 WEEKS
     Route: 051
     Dates: end: 20170621

REACTIONS (4)
  - Rectal ulcer [Recovering/Resolving]
  - Pneumonia [Fatal]
  - Myositis [Not Recovered/Not Resolved]
  - Renal impairment [Recovered/Resolved]

NARRATIVE: CASE EVENT DATE: 20170514
